FAERS Safety Report 5451540-8 (Version None)
Quarter: 2007Q3

REPORT INFORMATION
  Report Type: 
  Country: None (occurrence: None)
  Receive Date: 20070913
  Receipt Date: 20070903
  Transmission Date: 20080115
  Serious: Yes (Hospitalization)
  Sender: FDA-Public Use
  Company Number: FR-SANOFI-SYNTHELABO-A02200702604

PATIENT
  Age: 57 Year
  Sex: Male

DRUGS (5)
  1. CORTANCYL [Suspect]
     Indication: SYSTEMIC LUPUS ERYTHEMATOSUS
     Route: 048
     Dates: start: 20041201
  2. METHOTREXATE [Suspect]
     Indication: SYSTEMIC LUPUS ERYTHEMATOSUS
     Dosage: UNK
     Route: 065
     Dates: end: 20040701
  3. PLAQUENIL [Suspect]
     Indication: SYSTEMIC LUPUS ERYTHEMATOSUS
     Dosage: 400 MG
     Route: 048
     Dates: start: 20041201
  4. PLAQUENIL [Suspect]
     Dosage: UNK
     Route: 048
     Dates: end: 20040701
  5. METHYLPREDNISOLONE 16MG TAB [Suspect]
     Indication: SYSTEMIC LUPUS ERYTHEMATOSUS
     Route: 040
     Dates: start: 20041201, end: 20041201

REACTIONS (2)
  - HEPATITIS [None]
  - HERPES VIRUS INFECTION [None]
